FAERS Safety Report 15853073 (Version 1)
Quarter: 2019Q1

REPORT INFORMATION
  Report Type: Spontaneous
  Country: US (occurrence: US)
  Receive Date: 20190119
  Receipt Date: 20190119
  Transmission Date: 20190417
  Serious: Yes (Disabling)
  Sender: FDA-Public Use
  Company Number: None

PATIENT
  Age: 52 Year
  Sex: Female
  Weight: 54 kg

DRUGS (7)
  1. VITAMIN B COMPLEX [Concomitant]
     Active Substance: CYANOCOBALAMIN\DEXPANTHENOL\NIACINAMIDE\PYRIDOXINE HYDROCHLORIDE\RIBOFLAVIN 5^-PHOSPHATE SODIUM\THIAMINE HYDROCHLORIDE\VITAMIN B COMPLEX
  2. VITAMIN E [Concomitant]
     Active Substance: .ALPHA.-TOCOPHEROL
  3. LOSARTAN POT 100 MG TAB AURO [Suspect]
     Active Substance: LOSARTAN POTASSIUM
     Indication: HYPERTENSION
     Dosage: ?          QUANTITY:1 TABLET(S);?
     Route: 048
     Dates: start: 20140501, end: 20140815
  4. VITAMIN D [Concomitant]
     Active Substance: CHOLECALCIFEROL
  5. VITAMIN C [Concomitant]
     Active Substance: ASCORBIC ACID
  6. MULTI VITAMIN [Concomitant]
     Active Substance: VITAMINS
  7. METOPROL SUC 50 MG ER [Concomitant]

REACTIONS (10)
  - Gait disturbance [None]
  - Myalgia [None]
  - Breast cancer [None]
  - Muscular weakness [None]
  - Burning sensation [None]
  - Pain [None]
  - Immune system disorder [None]
  - Fatigue [None]
  - Muscle tightness [None]
  - Asthenia [None]

NARRATIVE: CASE EVENT DATE: 20140825
